FAERS Safety Report 4516236-5 (Version None)
Quarter: 2004Q4

REPORT INFORMATION
  Report Type: 
  Country: None (occurrence: None)
  Receive Date: 20041130
  Receipt Date: 20041130
  Transmission Date: 20050328
  Serious: Yes (Hospitalization)
  Sender: FDA-Public Use
  Company Number: None

PATIENT
  Age: 63 Year
  Sex: Male

DRUGS (2)
  1. CISPLATIN [Suspect]
     Indication: TONSIL CANCER
     Dosage: 100 MG IV
     Route: 042
     Dates: start: 20041116
  2. XRT [Concomitant]

REACTIONS (16)
  - BLOOD BICARBONATE INCREASED [None]
  - BLOOD CREATINE INCREASED [None]
  - BLOOD UREA INCREASED [None]
  - DEHYDRATION [None]
  - HAEMATEMESIS [None]
  - HOARSENESS [None]
  - HYPOCHLORAEMIA [None]
  - LIPASE INCREASED [None]
  - MOUTH HAEMORRHAGE [None]
  - NAUSEA [None]
  - NECK PAIN [None]
  - ODYNOPHAGIA [None]
  - PANCREATITIS [None]
  - SPEECH DISORDER [None]
  - STOMATITIS [None]
  - VOMITING [None]
